FAERS Safety Report 12699883 (Version 2)
Quarter: 2016Q3

REPORT INFORMATION
  Report Type: Report from Study
  Country: US (occurrence: US)
  Receive Date: 20160830
  Receipt Date: 20160913
  Transmission Date: 20161109
  Serious: Yes (Death)
  Sender: FDA-Public Use
  Company Number: US-EXELIXIS-CABO-16006946

PATIENT
  Age: 71 Year
  Sex: Female

DRUGS (7)
  1. LANOXIN [Concomitant]
     Active Substance: DIGOXIN
  2. WARFARIN [Concomitant]
     Active Substance: WARFARIN
  3. TRAMADOL. [Concomitant]
     Active Substance: TRAMADOL
  4. GABAPENTIN. [Concomitant]
     Active Substance: GABAPENTIN
  5. METOPROLOL. [Concomitant]
     Active Substance: METOPROLOL
  6. COMETRIQ [Suspect]
     Active Substance: CABOZANTINIB S-MALATE
     Indication: THYROID CANCER
     Dosage: 80 MG, QD
     Route: 048
     Dates: start: 20160610, end: 201607
  7. NEXIUM [Concomitant]
     Active Substance: ESOMEPRAZOLE MAGNESIUM

REACTIONS (1)
  - Malignant neoplasm progression [Fatal]

NARRATIVE: CASE EVENT DATE: 20160810
